FAERS Safety Report 17049340 (Version 1)
Quarter: 2019Q4

REPORT INFORMATION
  Report Type: Spontaneous
  Country: US (occurrence: US)
  Receive Date: 20191119
  Receipt Date: 20191119
  Transmission Date: 20200122
  Serious: Yes (Life-Threatening, Other)
  Sender: FDA-Public Use
  Company Number: None

PATIENT
  Age: 42 Year
  Sex: Male
  Weight: 81.9 kg

DRUGS (1)
  1. ATENOLOL 25MG. [Suspect]
     Active Substance: ATENOLOL
     Indication: HYPERTENSION
     Dosage: ?          QUANTITY:1 TABLET(S);?
     Route: 048
     Dates: start: 20190920, end: 20191109

REACTIONS (3)
  - Suicidal ideation [None]
  - Erectile dysfunction [None]
  - Drug screen false positive [None]

NARRATIVE: CASE EVENT DATE: 20191013
